FAERS Safety Report 15986062 (Version 1)
Quarter: 2019Q1

REPORT INFORMATION
  Report Type: Report from Study
  Country: TN (occurrence: TN)
  Receive Date: 20190220
  Receipt Date: 20190220
  Transmission Date: 20190418
  Serious: Yes (Hospitalization)
  Sender: FDA-Public Use
  Company Number: TN-SA-2019SA043380

PATIENT
  Age: 58 Year
  Sex: Female

DRUGS (4)
  1. CORVASAL [MOLSIDOMINE] [Concomitant]
  2. INSULIN GLARGINE [Suspect]
     Active Substance: INSULIN GLARGINE
     Indication: DIABETES MELLITUS
     Dosage: 24 U, QD
     Route: 058
  3. ATOR [Concomitant]
     Active Substance: ATORVASTATIN CALCIUM
  4. NOVORAPID [Concomitant]
     Active Substance: INSULIN ASPART

REACTIONS (6)
  - Hyperglycaemia [Not Recovered/Not Resolved]
  - Wheezing [Not Recovered/Not Resolved]
  - Pallor [Not Recovered/Not Resolved]
  - Pulmonary oedema [Not Recovered/Not Resolved]
  - Dyspnoea [Not Recovered/Not Resolved]
  - Bronchitis [Not Recovered/Not Resolved]

NARRATIVE: CASE EVENT DATE: 20190212
